FAERS Safety Report 26116199 (Version 1)
Quarter: 2025Q4

REPORT INFORMATION
  Report Type: Spontaneous
  Country: US (occurrence: US)
  Receive Date: 20251203
  Receipt Date: 20251203
  Transmission Date: 20260117
  Serious: Yes (Hospitalization, Other)
  Sender: CELLTRION
  Company Number: US-CELLTRION INC.-2025US034771

PATIENT

DRUGS (3)
  1. ADALIMUMAB [Suspect]
     Active Substance: ADALIMUMAB
     Indication: Rheumatoid arthritis
     Dosage: 40 MG EVERY 14 DAYS (RECEIVED A TOTAL OF 3 DOSES AT WEEKS 0, 2, AND 4)
     Route: 058
     Dates: start: 202406
  2. ADALIMUMAB [Suspect]
     Active Substance: ADALIMUMAB
     Dosage: 40 MG EVERY 14 DAYS (RECEIVED A TOTAL OF 3 DOSES AT WEEKS 0, 2, AND 4)
     Route: 058
     Dates: start: 202406
  3. ADALIMUMAB [Suspect]
     Active Substance: ADALIMUMAB
     Dosage: 40 MG EVERY 14 DAYS (RECEIVED A TOTAL OF 3 DOSES AT WEEKS 0, 2, AND 4)
     Route: 058
     Dates: start: 202406

REACTIONS (1)
  - Thrombocytopenia [Unknown]
